FAERS Safety Report 24680050 (Version 4)
Quarter: 2025Q4

REPORT INFORMATION
  Report Type: Report from Study
  Country: US (occurrence: US)
  Receive Date: 20241129
  Receipt Date: 20251218
  Transmission Date: 20260117
  Serious: Yes (Other)
  Sender: UCB
  Company Number: US-UCBSA-2024061618

PATIENT
  Age: 26 Year
  Weight: 79.37 kg

DRUGS (2)
  1. FENFLURAMINE [Suspect]
     Active Substance: FENFLURAMINE
     Indication: Product used for unknown indication
     Dosage: 24.2 MILLIGRAM/DAY
  2. FENFLURAMINE [Suspect]
     Active Substance: FENFLURAMINE
     Dosage: 24.2 MILLIGRAM/DAY

REACTIONS (3)
  - Aortic valve incompetence [Unknown]
  - Atrial septal defect [Unknown]
  - Aortic valve thickening [Unknown]
